FAERS Safety Report 7834326-6 (Version None)
Quarter: 2011Q4

REPORT INFORMATION
  Report Type: 
  Country: None (occurrence: None)
  Receive Date: 20111024
  Receipt Date: 20111012
  Transmission Date: 20120403
  Serious: Yes (Other)
  Sender: FDA-Public Use
  Company Number: PHHY2011MX90597

PATIENT
  Sex: Female

DRUGS (1)
  1. ZOLEDRONOC ACID [Suspect]
     Indication: OSTEOPOROSIS
     Dosage: 5 MG/100ML/YEAR
     Route: 042
     Dates: start: 20110212

REACTIONS (3)
  - EYE HAEMORRHAGE [None]
  - ABNORMAL SENSATION IN EYE [None]
  - HEADACHE [None]
